FAERS Safety Report 18469342 (Version 1)
Quarter: 2020Q4

REPORT INFORMATION
  Report Type: Spontaneous
  Country: US (occurrence: US)
  Receive Date: 20201105
  Receipt Date: 20201105
  Transmission Date: 20210114
  Serious: No
  Sender: FDA-Public Use
  Company Number: US-SA-2020SA306159

PATIENT

DRUGS (1)
  1. LANTUS SOLOSTAR [Suspect]
     Active Substance: INSULIN GLARGINE
     Indication: TYPE 2 DIABETES MELLITUS
     Dosage: 35 UNITS IN THE MORNING, 12 UNITS AT NOON, AND 35 UNITS AT NIGHT
     Route: 065
     Dates: start: 2010

REACTIONS (1)
  - Inappropriate schedule of product administration [Unknown]
